FAERS Safety Report 15043007 (Version 1)
Quarter: 2018Q2

REPORT INFORMATION
  Report Type: Spontaneous
  Country: US (occurrence: US)
  Receive Date: 20180531
  Receipt Date: 20180531
  Transmission Date: 20180711
  Serious: No
  Sender: FDA-Public Use
  Company Number: None

PATIENT
  Age: 53 Year
  Sex: Female
  Weight: 83.91 kg

DRUGS (1)
  1. KIRKLAND SIGNATURE ACETAMINOPHEN ADULT EXTRA STRENGTH [Suspect]
     Active Substance: ACETAMINOPHEN
     Indication: HEADACHE
     Route: 048
     Dates: start: 20180513, end: 20180513

REACTIONS (4)
  - Dry mouth [None]
  - Hallucinations, mixed [None]
  - Dry skin [None]
  - Aptyalism [None]
